FAERS Safety Report 9527642 (Version 1)
Quarter: 2013Q3

REPORT INFORMATION
  Report Type: Spontaneous
  Country: US (occurrence: None)
  Receive Date: 20130913
  Receipt Date: 20130913
  Transmission Date: 20140515
  Serious: No
  Sender: FDA-Public Use
  Company Number: None

PATIENT
  Age: 65 Year
  Sex: Male
  Weight: 91.63 kg

DRUGS (1)
  1. CREST PRO-HEALTH CLINICAL GUM PROTECTION [Suspect]
     Indication: DENTAL CARE
     Dosage: 1 STRIP BY MOUTH
     Dates: start: 20130101, end: 20130911

REACTIONS (1)
  - Oral mucosal exfoliation [None]
